FAERS Safety Report 10156532 (Version 1)
Quarter: 2014Q2

REPORT INFORMATION
  Report Type: Spontaneous
  Country: BR (occurrence: BR)
  Receive Date: 20140507
  Receipt Date: 20140507
  Transmission Date: 20141212
  Serious: Yes (Hospitalization)
  Sender: FDA-Public Use
  Company Number: BR-ASTRAZENECA-2014SE29633

PATIENT
  Age: 72 Year
  Sex: Female
  Weight: 65 kg

DRUGS (11)
  1. OMEPRAZOLE [Suspect]
     Indication: PROPHYLAXIS AGAINST GASTROINTESTINAL ULCER
     Dosage: DAILY
     Route: 048
     Dates: start: 2011
  2. SELOZOK [Suspect]
     Indication: HYPERTENSION
     Route: 048
     Dates: start: 2013
  3. CIMZIA [Suspect]
     Indication: RHEUMATOID ARTHRITIS
     Dosage: 200 MG/ML, TWICE A MONTH
     Route: 058
     Dates: start: 20140115
  4. MODURETIC [Concomitant]
     Indication: HYPERTENSION
     Dosage: DAILY
     Route: 048
  5. CALCIUM [Concomitant]
     Dosage: DAILY
     Route: 048
  6. METHOTREXATE [Concomitant]
     Indication: RHEUMATOID ARTHRITIS
     Dosage: ONCE A WEEK
     Route: 048
  7. TYLENOL [Concomitant]
     Indication: PAIN
     Dosage: AS REQUIRED
     Route: 048
  8. PURAN T4 [Concomitant]
     Indication: THYROIDECTOMY
     Dosage: DAILY
     Route: 048
  9. SIMVASTATIN [Concomitant]
     Indication: BLOOD CHOLESTEROL INCREASED
     Dosage: DAILY
     Route: 048
     Dates: start: 2013
  10. ALOPURINOL [Concomitant]
     Indication: BLOOD URIC ACID INCREASED
     Dosage: DAILY
     Route: 048
     Dates: start: 201304
  11. FOLINFOLIN [Concomitant]
     Indication: BLOOD URIC ACID INCREASED
     Dosage: DAILY
     Route: 048
     Dates: start: 201304

REACTIONS (4)
  - Visual acuity reduced [Recovered/Resolved]
  - Blood cholesterol increased [Recovered/Resolved]
  - Blood uric acid increased [Recovered/Resolved]
  - Weight decreased [Not Recovered/Not Resolved]
